FAERS Safety Report 19491205 (Version 1)
Quarter: 2021Q3

REPORT INFORMATION
  Report Type: Spontaneous
  Country: US (occurrence: US)
  Receive Date: 20210705
  Receipt Date: 20210705
  Transmission Date: 20211014
  Serious: No
  Sender: FDA-Public Use
  Company Number: US-RECKITT BENCKISER HEALTHCARE INT LIMITED-RB-80364-2021

PATIENT
  Sex: Female

DRUGS (1)
  1. MUCINEX DM MAXIMUM STRENGTH [Suspect]
     Active Substance: DEXTROMETHORPHAN HYDROBROMIDE\GUAIFENESIN
     Indication: COUGH
     Dosage: 1 DOSAGE FORM, BID, AMOUNT USED: 2 TABLET
     Route: 065
     Dates: start: 20201122, end: 20201122

REACTIONS (2)
  - Diplopia [Recovered/Resolved]
  - Dizziness [Recovered/Resolved]
